FAERS Safety Report 17355371 (Version 3)
Quarter: 2020Q1

REPORT INFORMATION
  Report Type: Spontaneous
  Country: IT (occurrence: IT)
  Receive Date: 20200131
  Receipt Date: 20200303
  Transmission Date: 20200409
  Serious: Yes (Death, Other)
  Sender: FDA-Public Use
  Company Number: IT-ABBVIE-20K-083-3259063-00

PATIENT
  Age: 6 Year
  Sex: Male

DRUGS (1)
  1. IMBRUVICA [Suspect]
     Active Substance: IBRUTINIB
     Indication: PRODUCT USED FOR UNKNOWN INDICATION
     Dosage: 2 CAPSULE OF 140 MG PLUS 70 MG
     Route: 048

REACTIONS (6)
  - Rash [Unknown]
  - Pyrexia [Recovered/Resolved]
  - Product use issue [Unknown]
  - Febrile bone marrow aplasia [Unknown]
  - Off label use [Unknown]
  - Disease progression [Fatal]
